FAERS Safety Report 5316787-X (Version None)
Quarter: 2007Q2

REPORT INFORMATION
  Report Type: 
  Country: None (occurrence: None)
  Receive Date: 20070501
  Receipt Date: 20070501
  Transmission Date: 20071010
  Serious: Yes (Other)
  Sender: FDA-Public Use
  Company Number: None

PATIENT
  Age: 41 Year
  Sex: Female
  Weight: 86.1834 kg

DRUGS (2)
  1. MORPHINE [Suspect]
     Indication: BACK PAIN
     Dates: start: 20051212, end: 20060416
  2. MORPHINE [Suspect]
     Indication: FIBROMYALGIA
     Dates: start: 20051212, end: 20060416

REACTIONS (2)
  - OVERDOSE [None]
  - PHARMACEUTICAL PRODUCT COMPLAINT [None]
